FAERS Safety Report 9681584 (Version 1)
Quarter: 2013Q4

REPORT INFORMATION
  Report Type: Spontaneous
  Country: AU (occurrence: AU)
  Receive Date: 20131111
  Receipt Date: 20131111
  Transmission Date: 20140711
  Serious: Yes (Other)
  Sender: FDA-Public Use
  Company Number: AU-PFIZER INC-2013318046

PATIENT
  Sex: Female

DRUGS (2)
  1. ZOLOFT [Suspect]
     Dosage: UNK
     Dates: start: 201308, end: 2013
  2. MIRTAZAPINE [Suspect]
     Dosage: UNK
     Dates: start: 201310, end: 2013

REACTIONS (3)
  - Serotonin syndrome [Unknown]
  - Blood creatine phosphokinase increased [Unknown]
  - Muscular weakness [Unknown]
